FAERS Safety Report 13149498 (Version 3)
Quarter: 2018Q1

REPORT INFORMATION
  Report Type: Report from Study
  Country: US (occurrence: US)
  Receive Date: 20170124
  Receipt Date: 20180125
  Transmission Date: 20180508
  Serious: No
  Sender: FDA-Public Use
  Company Number: US-AMGEN-USASL2016145903

PATIENT
  Age: 76 Year
  Sex: Female

DRUGS (3)
  1. ARMOUR THYROID [Concomitant]
     Active Substance: THYROID, PORCINE
     Indication: HYPOTHYROIDISM
  2. LOSARTAN. [Concomitant]
     Active Substance: LOSARTAN
     Indication: HYPERTENSION
  3. REPATHA [Suspect]
     Active Substance: EVOLOCUMAB
     Indication: PRODUCT USED FOR UNKNOWN INDICATION
     Dosage: 140 MG, Q2WK
     Route: 065
     Dates: start: 20160216

REACTIONS (16)
  - Peripheral swelling [Recovering/Resolving]
  - Cough [Recovered/Resolved]
  - Headache [Recovered/Resolved]
  - Arthralgia [Recovering/Resolving]
  - Dyspnoea [Recovering/Resolving]
  - Back pain [Recovering/Resolving]
  - Rash [Recovering/Resolving]
  - Swelling [Recovered/Resolved]
  - Skin ulcer [Recovering/Resolving]
  - Impaired healing [Recovering/Resolving]
  - Joint swelling [Recovered/Resolved]
  - Myalgia [Recovered/Resolved]
  - Pruritus generalised [Recovered/Resolved]
  - Rash pruritic [Recovering/Resolving]
  - Mobility decreased [Recovering/Resolving]
  - Diarrhoea [Recovered/Resolved]
